FAERS Safety Report 6057541-3 (Version None)
Quarter: 2009Q1

REPORT INFORMATION
  Report Type: 
  Country: None (occurrence: None)
  Receive Date: 20090127
  Receipt Date: 20090127
  Transmission Date: 20090719
  Serious: Yes (Other)
  Sender: FDA-Public Use
  Company Number: None

PATIENT
  Age: 53 Year
  Sex: Female
  Weight: 63.5036 kg

DRUGS (2)
  1. GENERIC OXYCODONE .5MG MALLENKRUDT [Suspect]
     Indication: NEURALGIA
     Dosage: .5MG  PRN - 2 P/DAY PO
     Route: 048
     Dates: start: 20090123, end: 20090124
  2. OXYCONTIN [Concomitant]

REACTIONS (4)
  - ABDOMINAL PAIN UPPER [None]
  - DRUG INEFFECTIVE [None]
  - EMOTIONAL DISTRESS [None]
  - PRODUCT QUALITY ISSUE [None]
